FAERS Safety Report 12455181 (Version 2)
Quarter: 2016Q2

REPORT INFORMATION
  Report Type: Report from Study
  Country: CA (occurrence: CA)
  Receive Date: 20160610
  Receipt Date: 20160615
  Transmission Date: 20160815
  Serious: Yes (Hospitalization)
  Sender: FDA-Public Use
  Company Number: PHHO2016CA008205

PATIENT
  Age: 85 Year
  Sex: Male
  Weight: 78.9 kg

DRUGS (6)
  1. QVA149 [Suspect]
     Active Substance: INVESTIGATIONAL PRODUCT
     Indication: CHRONIC OBSTRUCTIVE PULMONARY DISEASE
     Dosage: INDACATEROL 110 MCG/GLYCOPYRRONIUM BROMIDE 50 MCG
     Route: 055
     Dates: start: 20160127, end: 20160523
  2. OLMETEC [Concomitant]
     Active Substance: OLMESARTAN MEDOXOMIL
     Indication: HYPERTENSION
     Dosage: 20 MG, OB
     Route: 065
     Dates: start: 20150921
  3. TANSULOSINA [Concomitant]
     Indication: PROSTATIC DISORDER
     Dosage: 0.4 MG, OB
     Route: 065
     Dates: start: 20150921
  4. CLOPIDOGREL [Concomitant]
     Active Substance: CLOPIDOGREL BISULFATE
     Indication: CORONARY ARTERY DISEASE
     Dosage: 75 MG, OB
     Route: 065
     Dates: start: 20160525
  5. CRESTOR [Concomitant]
     Active Substance: ROSUVASTATIN CALCIUM
     Indication: DYSLIPIDAEMIA
     Dosage: 20 MG, OB
     Route: 065
     Dates: start: 20160120
  6. LASIX [Concomitant]
     Active Substance: FUROSEMIDE
     Indication: CARDIAC FAILURE CONGESTIVE
     Dosage: 40 MG, OB
     Route: 065
     Dates: start: 20150427

REACTIONS (2)
  - Pneumonia [Recovered/Resolved]
  - Chronic obstructive pulmonary disease [Recovered/Resolved]

NARRATIVE: CASE EVENT DATE: 20160519
